FAERS Safety Report 7117160-4 (Version None)
Quarter: 2010Q4

REPORT INFORMATION
  Report Type: 
  Country: None (occurrence: None)
  Receive Date: 20101115
  Receipt Date: 20101109
  Transmission Date: 20110411
  Serious: Yes (Death, Hospitalization)
  Sender: FDA-Public Use
  Company Number: 2010US004618

PATIENT
  Age: 33 Year
  Sex: Male
  Weight: 68 kg

DRUGS (16)
  1. PROGRAF [Suspect]
     Indication: BONE MARROW TRANSPLANT
     Dosage: 3 MG, BID, ORAL
     Route: 048
     Dates: start: 20100609, end: 20101102
  2. ACYCLOVIR [Concomitant]
  3. CLONIDINE [Concomitant]
  4. LEVOFLOXACIN [Concomitant]
  5. MAGNESIUM OXIDE (MAGNEXIUM OXIDE) [Concomitant]
  6. REGLAN [Concomitant]
  7. METOPROLOL SUCCINATE [Concomitant]
  8. MORPHINE SULFATE INJ [Concomitant]
  9. CELLCEPT (MYCOPHENOLATE MOFETIL) [Concomitant]
  10. PANTOPRAZOLE SODIUM [Concomitant]
  11. HYDRALAZINE HCL [Concomitant]
  12. PREDNISONE TAB [Concomitant]
  13. HYDROCODONE BITARTRATE [Concomitant]
  14. PROMETHAZINE (PROMETHAZINE) [Concomitant]
  15. TEMAZEPAM [Concomitant]
  16. GLYBURIDE [Concomitant]

REACTIONS (2)
  - COMPLICATIONS OF BONE MARROW TRANSPLANT [None]
  - LUNG INFECTION [None]
